FAERS Safety Report 24605903 (Version 1)
Quarter: 2024Q4

REPORT INFORMATION
  Report Type: Spontaneous
  Country: US (occurrence: US)
  Receive Date: 20241111
  Receipt Date: 20241111
  Transmission Date: 20250115
  Serious: Yes (Other)
  Sender: UCB
  Company Number: US-UCBSA-2024057603

PATIENT
  Sex: Female

DRUGS (1)
  1. CIMZIA [Suspect]
     Active Substance: CERTOLIZUMAB PEGOL
     Indication: Rheumatoid arthritis
     Dosage: 400 MILLIGRAM, EV 4 WEEKS
     Route: 058
     Dates: start: 202405

REACTIONS (6)
  - Rheumatoid arthritis [Unknown]
  - Skin discolouration [Unknown]
  - Injection site vesicles [Unknown]
  - Product dose omission issue [Unknown]
  - COVID-19 immunisation [Unknown]
  - Influenza immunisation [Unknown]

NARRATIVE: CASE EVENT DATE: 20240101
